FAERS Safety Report 7644175-X (Version None)
Quarter: 2011Q3

REPORT INFORMATION
  Report Type: 
  Country: None (occurrence: None)
  Receive Date: 20110729
  Receipt Date: 20110720
  Transmission Date: 20111222
  Serious: Yes (Hospitalization)
  Sender: FDA-Public Use
  Company Number: GB-ASTRAZENECA-2011SE44575

PATIENT
  Sex: Female

DRUGS (3)
  1. FASLODEX [Suspect]
     Indication: BREAST CANCER METASTATIC
     Dosage: LOADING DOSE
     Route: 030
     Dates: start: 20080723, end: 20080723
  2. ARIMIDEX [Suspect]
     Indication: BREAST CANCER METASTATIC
     Dosage: DAILY
     Route: 048
     Dates: start: 20080723, end: 20100806
  3. FASLODEX [Suspect]
     Route: 030
     Dates: start: 20080804, end: 20100806

REACTIONS (2)
  - CONFUSIONAL STATE [None]
  - HIP FRACTURE [None]
